FAERS Safety Report 17441010 (Version 1)
Quarter: 2020Q1

REPORT INFORMATION
  Report Type: Report from Study
  Country: US (occurrence: US)
  Receive Date: 20200220
  Receipt Date: 20200220
  Transmission Date: 20200409
  Serious: Yes (Other)
  Sender: FDA-Public Use
  Company Number: US-ASTELLAS-2020US001504

PATIENT
  Age: 91 Year
  Sex: Male

DRUGS (2)
  1. ENZALUTAMIDE [Suspect]
     Active Substance: ENZALUTAMIDE
     Indication: PROSTATE CANCER
     Route: 048
     Dates: start: 201912, end: 201912
  2. ENZALUTAMIDE [Suspect]
     Active Substance: ENZALUTAMIDE
     Route: 048
     Dates: start: 201912, end: 202001

REACTIONS (4)
  - Diabetes mellitus [Unknown]
  - Fatigue [Recovering/Resolving]
  - Asthenia [Recovering/Resolving]
  - Sluggishness [Unknown]

NARRATIVE: CASE EVENT DATE: 201912
